FAERS Safety Report 17962087 (Version 1)
Quarter: 2020Q2

REPORT INFORMATION
  Report Type: Spontaneous
  Country: US (occurrence: US)
  Receive Date: 20200629
  Receipt Date: 20200629
  Transmission Date: 20200714
  Serious: Yes (Hospitalization)
  Sender: FDA-Public Use
  Company Number: None

PATIENT
  Age: 71 Year
  Sex: Male
  Weight: 67.4 kg

DRUGS (2)
  1. CEFEPIME [Suspect]
     Active Substance: CEFEPIME HYDROCHLORIDE
     Indication: DEVICE RELATED INFECTION
     Route: 042
     Dates: start: 20200514, end: 20200619
  2. CEFEPIME [Suspect]
     Active Substance: CEFEPIME HYDROCHLORIDE
     Indication: PSEUDOMONAS INFECTION
     Route: 042
     Dates: start: 20200514, end: 20200619

REACTIONS (5)
  - Neurotoxicity [None]
  - Dyskinesia [None]
  - Mental status changes [None]
  - Confusional state [None]
  - Muscle spasticity [None]

NARRATIVE: CASE EVENT DATE: 20200619
